FAERS Safety Report 13564746 (Version 1)
Quarter: 2017Q2

REPORT INFORMATION
  Report Type: Spontaneous
  Country: DE (occurrence: DE)
  Receive Date: 20170519
  Receipt Date: 20170519
  Transmission Date: 20170830
  Serious: Yes (Death, Hospitalization)
  Sender: FDA-Public Use
  Company Number: DE-EISAI MEDICAL RESEARCH-EC-2017-027660

PATIENT
  Age: 50 Year
  Sex: Male

DRUGS (1)
  1. KISPLYX [Suspect]
     Active Substance: LENVATINIB
     Indication: RENAL CELL CARCINOMA
     Dosage: UNKNOWN
     Route: 048
     Dates: start: 20170227, end: 2017

REACTIONS (1)
  - Embolism [Fatal]

NARRATIVE: CASE EVENT DATE: 2017
